FAERS Safety Report 14739735 (Version 1)
Quarter: 2018Q2

REPORT INFORMATION
  Report Type: Spontaneous
  Country: FR (occurrence: FR)
  Receive Date: 20180410
  Receipt Date: 20180410
  Transmission Date: 20180711
  Serious: Yes (Other)
  Sender: FDA-Public Use
  Company Number: FR-MERCK KGAA-2045429

PATIENT
  Age: 57 Year
  Sex: Female
  Weight: 90 kg

DRUGS (7)
  1. NOVOTHYROX [Suspect]
     Active Substance: LEVOTHYROXINE SODIUM
     Indication: THYROID MASS
     Route: 048
  2. HYTACAND(BLOPRESS PLUS) [Concomitant]
     Route: 048
     Dates: start: 1990
  3. ATROVENT [Concomitant]
     Active Substance: IPRATROPIUM BROMIDE
     Route: 045
     Dates: start: 2005
  4. PULMICORT TURBUHALER [Concomitant]
     Active Substance: BUDESONIDE
     Route: 045
     Dates: start: 2005
  5. FORADIL [Concomitant]
     Active Substance: FORMOTEROL FUMARATE
     Dates: start: 2004
  6. VENTOLINE [Concomitant]
     Active Substance: ALBUTEROL
     Route: 055
     Dates: start: 1985
  7. BRICANYL [Concomitant]
     Active Substance: TERBUTALINE SULFATE
     Route: 045
     Dates: start: 2005

REACTIONS (4)
  - IRVAN syndrome [Not Recovered/Not Resolved]
  - Amnesia [Not Recovered/Not Resolved]
  - Dizziness [Not Recovered/Not Resolved]
  - Fatigue [Not Recovered/Not Resolved]

NARRATIVE: CASE EVENT DATE: 20170701
